FAERS Safety Report 13605218 (Version 6)
Quarter: 2017Q3

REPORT INFORMATION
  Report Type: Report from Study
  Country: FR (occurrence: FR)
  Receive Date: 20170602
  Receipt Date: 20170731
  Transmission Date: 20171127
  Serious: Yes (Disabling)
  Sender: FDA-Public Use
  Company Number: FR-ROCHE-1939602

PATIENT
  Age: 54 Year
  Sex: Female

DRUGS (6)
  1. PERTUZUMAB. [Suspect]
     Active Substance: PERTUZUMAB
     Dosage: MAINTENANCE DOSE?DATE OF LAST ADMINISTRATION BEFORE SAE: 03/MAR/2017
     Route: 042
  2. VINORELBINE [Suspect]
     Active Substance: VINORELBINE\VINORELBINE TARTRATE
     Dosage: DATE OF LAST ADMINISTRATION BEFORE SAE: 10/JUN/2014?DAY 1, 8 EVERY 21 DAYS
     Route: 042
     Dates: start: 20131213
  3. TRASTUZUMAB. [Suspect]
     Active Substance: TRASTUZUMAB
     Indication: HER-2 POSITIVE BREAST CANCER
     Dosage: LOADING DOSE
     Route: 042
     Dates: start: 20131213
  4. TRASTUZUMAB. [Suspect]
     Active Substance: TRASTUZUMAB
     Dosage: MAINTENANCE DOSE?DATE OF LAST ADMINISTRATION BEFORE SAE (418 MG): 03/MAR/2017
     Route: 042
  5. VINORELBINE [Suspect]
     Active Substance: VINORELBINE\VINORELBINE TARTRATE
     Indication: HER-2 POSITIVE BREAST CANCER
     Dosage: FIRST ADMINISTRATION
     Route: 042
     Dates: start: 20131213
  6. PERTUZUMAB. [Suspect]
     Active Substance: PERTUZUMAB
     Indication: HER-2 POSITIVE BREAST CANCER
     Dosage: LOADING DOSE
     Route: 042
     Dates: start: 20131213

REACTIONS (1)
  - Optic nerve disorder [Recovered/Resolved with Sequelae]

NARRATIVE: CASE EVENT DATE: 20170215
